FAERS Safety Report 8134630-0 (Version None)
Quarter: 2012Q1

REPORT INFORMATION
  Report Type: 
  Country: None (occurrence: None)
  Receive Date: 20120214
  Receipt Date: 20120203
  Transmission Date: 20120608
  Serious: Yes (Other)
  Sender: FDA-Public Use
  Company Number: US-ELI_LILLY_AND_COMPANY-US201202001625

PATIENT
  Age: 69 Year
  Sex: Male

DRUGS (3)
  1. EFFIENT [Suspect]
     Indication: PERCUTANEOUS CORONARY INTERVENTION
     Dosage: 10 MG, UNKNOWN
  2. ASPIRIN [Concomitant]
     Dosage: UNK, UNKNOWN
  3. ACE INHIBITORS [Concomitant]
     Dosage: UNK, UNKNOWN

REACTIONS (1)
  - IN-STENT ARTERIAL RESTENOSIS [None]
